FAERS Safety Report 13638175 (Version 1)
Quarter: 2017Q2

REPORT INFORMATION
  Report Type: Spontaneous
  Country: MY (occurrence: MY)
  Receive Date: 20170609
  Receipt Date: 20170609
  Transmission Date: 20170830
  Serious: Yes (Hospitalization)
  Sender: FDA-Public Use
  Company Number: MY-BAYER-2017-105050

PATIENT
  Age: 36 Year
  Sex: Female

DRUGS (8)
  1. AVELOX [Suspect]
     Active Substance: MOXIFLOXACIN HYDROCHLORIDE
     Indication: ANTIBIOTIC THERAPY
     Dosage: 400 MG, QD
     Dates: start: 20161022, end: 20161023
  2. SYMBICORT [Concomitant]
     Active Substance: BUDESONIDE\FORMOTEROL FUMARATE DIHYDRATE
     Dosage: 2 PUFF(S), BID
     Dates: start: 20161022
  3. ROCEPHIN [Concomitant]
     Active Substance: CEFTRIAXONE SODIUM
     Dosage: 1 G, BID
     Route: 042
     Dates: start: 20161022
  4. OSELTAMIVIR [Concomitant]
     Active Substance: OSELTAMIVIR
     Dosage: 75 MG, BID
     Dates: start: 20161022, end: 20161023
  5. DEXILANT [Concomitant]
     Active Substance: DEXLANSOPRAZOLE
     Dosage: 60 MG, QD
     Dates: start: 20161022
  6. SOLU-CORTEF [Concomitant]
     Active Substance: HYDROCORTISONE SODIUM SUCCINATE
     Dosage: 100 MG, TDS
     Route: 042
     Dates: start: 20161022, end: 20161024
  7. FLUIMUCIL ANTIBIOTIC [Concomitant]
     Dosage: 600 MG, BID
     Dates: start: 20161022
  8. COMBIVENT [Concomitant]
     Active Substance: ALBUTEROL SULFATE\IPRATROPIUM BROMIDE
     Dosage: 8 HOURLY PRN
     Route: 055
     Dates: start: 20161022, end: 20161022

REACTIONS (11)
  - Head titubation [Recovered/Resolved]
  - Palpitations [Recovered/Resolved]
  - Oculogyric crisis [Recovered/Resolved]
  - Head titubation [Recovered/Resolved]
  - Dyspnoea [Recovered/Resolved]
  - Palpitations [Recovered/Resolved]
  - Dyspnoea [Recovered/Resolved]
  - Vomiting [Recovered/Resolved]
  - Hypoaesthesia [Recovered/Resolved]
  - Vomiting [Recovered/Resolved]
  - Hypoaesthesia [Recovered/Resolved]

NARRATIVE: CASE EVENT DATE: 20161022
